FAERS Safety Report 9250761 (Version 1)
Quarter: 2013Q1

REPORT INFORMATION
  Report Type: Spontaneous
  Country: US (occurrence: None)
  Receive Date: 20130305
  Receipt Date: 20130305
  Transmission Date: 20140127
  Serious: Yes (Hospitalization, Other)
  Sender: FDA-Public Use
  Company Number: 163-21880-12040222

PATIENT
  Age: 74 Year
  Sex: Female
  Weight: 68.04 kg

DRUGS (5)
  1. REVLIMID [Suspect]
     Indication: PLASMA CELL MYELOMA
     Dosage: 25 MG, Q DAY X 21 DAYS, 7 DAYS OFF, PO
     Route: 048
     Dates: start: 20120319, end: 20120329
  2. OMEPRAZOLE (OMEPRAZOLE) [Concomitant]
  3. ASPIRIN (ACETYLSALICYLIC ACID) [Concomitant]
  4. SIMVASTATIN (SIMVASTATIN) [Concomitant]
  5. METOPROLOL (METOPROLOL) [Concomitant]

REACTIONS (2)
  - Rash generalised [None]
  - Lip swelling [None]
